FAERS Safety Report 23663874 (Version 3)
Quarter: 2024Q2

REPORT INFORMATION
  Report Type: Report from Study
  Country: CA (occurrence: CA)
  Receive Date: 20240322
  Receipt Date: 20240620
  Transmission Date: 20240716
  Serious: Yes (Hospitalization, Other)
  Sender: FDA-Public Use
  Company Number: CA-IPSEN Group, Research and Development-2022-00130

PATIENT
  Age: 66 Year
  Sex: Male
  Weight: 68 kg

DRUGS (6)
  1. LANREOTIDE ACETATE [Suspect]
     Active Substance: LANREOTIDE ACETATE
     Indication: Gastroenteropancreatic neuroendocrine tumour disease
     Dosage: 120 MG EVERY 4 WEEKS DEEP SC
     Route: 058
     Dates: start: 20170201
  2. XELODA [Suspect]
     Active Substance: CAPECITABINE
     Indication: Chemotherapy
     Dosage: LUNCH AND DINNER, DAY 10 TO DAY 14
  3. TEMODAL [Suspect]
     Active Substance: TEMOZOLOMIDE
     Indication: Chemotherapy
     Dosage: HS
  4. PROCHLORPERAZINE [Suspect]
     Active Substance: PROCHLORPERAZINE
     Indication: Chemotherapy
     Dosage: HS
  5. DEXAMETHASONE [Concomitant]
     Active Substance: DEXAMETHASONE
  6. PROGLYCEM [Concomitant]
     Active Substance: DIAZOXIDE

REACTIONS (27)
  - Pneumonia [Recovered/Resolved]
  - Hepatic neoplasm [Not Recovered/Not Resolved]
  - Blood glucose abnormal [Recovered/Resolved]
  - Tremor [Recovered/Resolved]
  - Pyrexia [Recovered/Resolved]
  - Cough [Not Recovered/Not Resolved]
  - Confusional state [Unknown]
  - Body temperature decreased [Unknown]
  - Hyperhidrosis [Unknown]
  - Swelling of eyelid [Not Recovered/Not Resolved]
  - Joint swelling [Not Recovered/Not Resolved]
  - Body temperature increased [Not Recovered/Not Resolved]
  - COVID-19 [Recovered/Resolved]
  - Pyrexia [Recovered/Resolved]
  - Peripheral swelling [Not Recovered/Not Resolved]
  - Vomiting [Recovered/Resolved]
  - Back pain [Not Recovered/Not Resolved]
  - Asthenia [Recovering/Resolving]
  - Fatigue [Not Recovered/Not Resolved]
  - Nausea [Not Recovered/Not Resolved]
  - Vomiting [Recovered/Resolved]
  - Hypoglycaemia [Not Recovered/Not Resolved]
  - Blood glucose abnormal [Not Recovered/Not Resolved]
  - Abdominal distension [Not Recovered/Not Resolved]
  - Fatigue [Not Recovered/Not Resolved]
  - Weight increased [Not Recovered/Not Resolved]
  - Expired product administered [Unknown]

NARRATIVE: CASE EVENT DATE: 20211224
